FAERS Safety Report 7770220-7 (Version None)
Quarter: 2011Q3

REPORT INFORMATION
  Report Type: 
  Country: None (occurrence: None)
  Receive Date: 20110922
  Receipt Date: 20101021
  Transmission Date: 20111222
  Serious: No
  Sender: FDA-Public Use
  Company Number: US-ASTRAZENECA-2010SE50078

PATIENT
  Age: 23 Year
  Sex: Male

DRUGS (2)
  1. SEROQUEL XR [Suspect]
     Indication: MENTAL DISORDER
     Route: 048
     Dates: start: 20100901
  2. SEROQUEL XR [Suspect]
     Dosage: SEROQUEL XR CUT IN HALF
     Route: 048

REACTIONS (4)
  - DEPRESSED MOOD [None]
  - SOCIAL AVOIDANT BEHAVIOUR [None]
  - CONSTIPATION [None]
  - BACK PAIN [None]
